FAERS Safety Report 8427323-3 (Version None)
Quarter: 2012Q2

REPORT INFORMATION
  Report Type: 
  Country: None (occurrence: None)
  Receive Date: 20120611
  Receipt Date: 20120604
  Transmission Date: 20120825
  Serious: Yes (Other)
  Sender: FDA-Public Use
  Company Number: US-CELGENEUS-163-21880-12060380

PATIENT

DRUGS (3)
  1. CARFILZOMIB [Suspect]
     Indication: MULTIPLE MYELOMA
     Dosage: 20/36MG/M2
     Route: 041
  2. DEXAMETHASONE [Suspect]
     Indication: MULTIPLE MYELOMA
     Dosage: 20/10MG
     Route: 065
  3. REVLIMID [Suspect]
     Indication: MULTIPLE MYELOMA
     Dosage: 25 MILLIGRAM
     Route: 048

REACTIONS (1)
  - ANXIETY [None]
